FAERS Safety Report 5675318-5 (Version None)
Quarter: 2008Q1

REPORT INFORMATION
  Report Type: 
  Country: None (occurrence: None)
  Receive Date: 20080320
  Receipt Date: 20080310
  Transmission Date: 20080703
  Serious: Yes (Death)
  Sender: FDA-Public Use
  Company Number: ES-WYE-G01222408

PATIENT
  Age: 61 Year
  Sex: Male

DRUGS (4)
  1. TIGECYCLINE [Suspect]
     Indication: PNEUMONIA
     Dosage: UNKNOWN
  2. CIPROFLOXACIN [Concomitant]
     Dosage: UNKNOWN
  3. COLISTIN SULFATE [Concomitant]
  4. LINEZOLID [Concomitant]
     Dosage: UNKNOWN

REACTIONS (1)
  - LUNG INFECTION PSEUDOMONAL [None]
